FAERS Safety Report 4880936-8 (Version None)
Quarter: 2005Q4

REPORT INFORMATION
  Report Type: 
  Country: None (occurrence: None)
  Receive Date: 20051223
  Receipt Date: 20050928
  Transmission Date: 20060501
  Serious: No
  Sender: FDA-Public Use
  Company Number: 05P-163-0312283-00

PATIENT
  Age: 57 Year
  Weight: 90.7194 kg

DRUGS (3)
  1. HUMIRA [Suspect]
     Indication: PSORIATIC ARTHROPATHY
     Dosage: 40 MG, 1 IN 2 WK, SUBCUTANEOUS
     Route: 058
     Dates: start: 20050919
  2. PREDNISONE [Concomitant]
  3. RAMIPRIL [Concomitant]

REACTIONS (2)
  - RASH [None]
  - RASH PRURITIC [None]
